FAERS Safety Report 6695212-0 (Version None)
Quarter: 2010Q2

REPORT INFORMATION
  Report Type: 
  Country: None (occurrence: None)
  Receive Date: 20100423
  Receipt Date: 20100415
  Transmission Date: 20101027
  Serious: Yes (Other)
  Sender: FDA-Public Use
  Company Number: US-AMGEN-QUU406391

PATIENT
  Sex: Male

DRUGS (10)
  1. NEULASTA [Suspect]
     Indication: CHEMOTHERAPY
     Route: 065
  2. NIFEDIPINE [Concomitant]
  3. NITROGLYCERIN [Concomitant]
  4. ASPIRIN [Concomitant]
  5. CARVEDILOL [Concomitant]
  6. CLONIDINE [Concomitant]
  7. NIACIN [Concomitant]
  8. OMEPRAZOLE [Concomitant]
  9. ETOPOSIDE [Concomitant]
  10. CARBOPLATIN [Concomitant]

REACTIONS (1)
  - THERAPEUTIC RESPONSE DECREASED [None]
